FAERS Safety Report 14527623 (Version 1)
Quarter: 2018Q1

REPORT INFORMATION
  Report Type: Other
  Country: US (occurrence: US)
  Receive Date: 20180213
  Receipt Date: 20180213
  Transmission Date: 20180509
  Serious: No
  Sender: FDA-Public Use
  Company Number: US-LEADING PHARMA-2041896

PATIENT
  Age: 75 Year
  Sex: Male

DRUGS (1)
  1. IMIPRAMINE HYDROCHLORIDE. [Suspect]
     Active Substance: IMIPRAMINE HYDROCHLORIDE

REACTIONS (2)
  - Drug eruption [None]
  - Granuloma [Recovered/Resolved]
